FAERS Safety Report 5376111-3 (Version None)
Quarter: 2007Q3

REPORT INFORMATION
  Report Type: 
  Country: None (occurrence: None)
  Receive Date: 20070702
  Receipt Date: 20070622
  Transmission Date: 20080115
  Serious: Yes (Other)
  Sender: FDA-Public Use
  Company Number: B0466301A

PATIENT
  Age: 69 Year
  Sex: Male

DRUGS (5)
  1. AMOXICILLIN [Suspect]
     Indication: PHARYNGOLARYNGEAL PAIN
     Route: 065
  2. ACETYLSALICYLIC ACID SRT [Concomitant]
     Route: 065
  3. GLIBENCLAMIDE [Concomitant]
     Route: 065
  4. VERAPAMIL [Concomitant]
     Route: 065
  5. FUROSEMIDE [Concomitant]
     Route: 065

REACTIONS (9)
  - ACUTE GENERALISED EXANTHEMATOUS PUSTULOSIS [None]
  - ADVERSE DRUG REACTION [None]
  - C-REACTIVE PROTEIN INCREASED [None]
  - ERYTHEMA [None]
  - HYPERSENSITIVITY [None]
  - LEUKOCYTOSIS [None]
  - RASH PUSTULAR [None]
  - SKIN EROSION [None]
  - SKIN TEST POSITIVE [None]
